FAERS Safety Report 6620109-1 (Version None)
Quarter: 2010Q1

REPORT INFORMATION
  Report Type: 
  Country: None (occurrence: None)
  Receive Date: 20100308
  Receipt Date: 20100308
  Transmission Date: 20100710
  Serious: No
  Sender: FDA-Public Use
  Company Number: None

PATIENT
  Sex: Male
  Weight: 113.3993 kg

DRUGS (1)
  1. HALDOL [Suspect]

REACTIONS (4)
  - ANEURYSM [None]
  - DEPRESSION [None]
  - ERECTILE DYSFUNCTION [None]
  - THROMBOSIS [None]
